FAERS Safety Report 15954213 (Version 1)
Quarter: 2019Q1

REPORT INFORMATION
  Report Type: Spontaneous
  Country: FR (occurrence: FR)
  Receive Date: 20190213
  Receipt Date: 20190213
  Transmission Date: 20190417
  Serious: Yes (Other)
  Sender: FDA-Public Use
  Company Number: FR-SA-2019SA036592

PATIENT
  Age: 41 Year
  Sex: Male

DRUGS (4)
  1. IMOVANE [Suspect]
     Active Substance: ZOPICLONE
     Dosage: UNK
     Route: 048
  2. STILNOX [Suspect]
     Active Substance: ZOLPIDEM TARTRATE
     Dosage: UNK
     Route: 048
  3. METHADONE HYDROCHLORIDE. [Suspect]
     Active Substance: METHADONE HYDROCHLORIDE
     Dosage: 240 MG, QD
     Route: 048
  4. LYSANXIA [Suspect]
     Active Substance: PRAZEPAM
     Dosage: UNK
     Route: 048

REACTIONS (3)
  - Libido disorder [Unknown]
  - Somnolence [Unknown]
  - Overdose [Unknown]
